FAERS Safety Report 10175254 (Version 3)
Quarter: 2014Q2

REPORT INFORMATION
  Report Type: Spontaneous
  Country: GR (occurrence: GR)
  Receive Date: 20140515
  Receipt Date: 20140627
  Transmission Date: 20141212
  Serious: Yes (Other)
  Sender: FDA-Public Use
  Company Number: GR-EXELIXIS-CABO-14004237

PATIENT
  Age: 35 Year
  Sex: Male

DRUGS (3)
  1. COMETRIQ [Suspect]
     Indication: MEDULLARY THYROID CANCER
     Dosage: 140 MG, QD
     Route: 048
     Dates: start: 20140110, end: 2014
  2. COMETRIQ [Suspect]
     Dosage: 100 MG, QD
     Route: 048
     Dates: start: 2014, end: 2014
  3. COMETRIQ [Suspect]
     Dosage: 60 MG, QD
     Route: 048
     Dates: start: 20140602, end: 20140620

REACTIONS (8)
  - Musculoskeletal pain [Unknown]
  - Arthralgia [Unknown]
  - Myalgia [Unknown]
  - Muscle spasms [Recovered/Resolved]
  - Musculoskeletal chest pain [Not Recovered/Not Resolved]
  - Stomatitis [Not Recovered/Not Resolved]
  - Dysphagia [Not Recovered/Not Resolved]
  - Gait disturbance [Unknown]
